FAERS Safety Report 13689946 (Version 1)
Quarter: 2017Q2

REPORT INFORMATION
  Report Type: Spontaneous
  Country: PR (occurrence: PR)
  Receive Date: 20170626
  Receipt Date: 20170626
  Transmission Date: 20170830
  Serious: Yes (Hospitalization, Other)
  Sender: FDA-Public Use
  Company Number: PR-BAYER-2017-114452

PATIENT
  Age: 25 Year
  Sex: Female

DRUGS (6)
  1. CIPROFLOXACIN. [Suspect]
     Active Substance: CIPROFLOXACIN
     Indication: PRODUCT USED FOR UNKNOWN INDICATION
     Dosage: UNK
     Route: 065
     Dates: end: 201008
  2. PROTONIX [Suspect]
     Active Substance: PANTOPRAZOLE SODIUM
     Indication: ABDOMINAL DISCOMFORT
     Dosage: UNK
     Dates: start: 2010
  3. CARAFATE [Concomitant]
     Active Substance: SUCRALFATE
     Indication: CROHN^S DISEASE
     Dosage: UNK
     Route: 048
     Dates: start: 2010
  4. HUMIRA [Suspect]
     Active Substance: ADALIMUMAB
     Indication: CROHN^S DISEASE
     Dosage: 40 MG, UNK
     Route: 058
     Dates: start: 201008, end: 201008
  5. HUMIRA [Suspect]
     Active Substance: ADALIMUMAB
     Indication: COLITIS ULCERATIVE
  6. CARAFATE [Concomitant]
     Active Substance: SUCRALFATE
     Indication: COLITIS ULCERATIVE

REACTIONS (17)
  - Female genital tract fistula [Not Recovered/Not Resolved]
  - Vaginal mucosal blistering [Recovered/Resolved]
  - Abdominal pain [Not Recovered/Not Resolved]
  - Dysuria [Recovered/Resolved]
  - Vaginal infection [Recovered/Resolved]
  - Gastrointestinal obstruction [Unknown]
  - Rash generalised [Recovered/Resolved]
  - Drug hypersensitivity [Recovered/Resolved]
  - Abdominal abscess [Not Recovered/Not Resolved]
  - Burning sensation [Recovered/Resolved]
  - Crohn^s disease [None]
  - Colitis ulcerative [None]
  - Gastrointestinal fistula [Unknown]
  - Urticaria [Recovered/Resolved]
  - Diarrhoea [Not Recovered/Not Resolved]
  - Pruritus generalised [Recovered/Resolved]
  - Erythema [Recovered/Resolved]

NARRATIVE: CASE EVENT DATE: 201008
